FAERS Safety Report 7339376-4 (Version None)
Quarter: 2011Q1

REPORT INFORMATION
  Report Type: 
  Country: None (occurrence: None)
  Receive Date: 20110308
  Receipt Date: 20110301
  Transmission Date: 20110831
  Serious: Yes (Other)
  Sender: FDA-Public Use
  Company Number: US-US-EMD SERONO, INC.-7004163

PATIENT
  Sex: Female

DRUGS (4)
  1. VITAMIN B6 [Concomitant]
  2. VITAMIN B-12 [Concomitant]
  3. REBIF [Suspect]
     Indication: MULTIPLE SCLEROSIS
     Route: 058
     Dates: start: 20090709
  4. VITAMIN D [Concomitant]

REACTIONS (6)
  - VISUAL IMPAIRMENT [None]
  - INFLUENZA LIKE ILLNESS [None]
  - INJECTION SITE PAIN [None]
  - CHILLS [None]
  - EXOSTOSIS [None]
  - HEADACHE [None]
